FAERS Safety Report 24583274 (Version 1)
Quarter: 2024Q4

REPORT INFORMATION
  Report Type: Spontaneous
  Country: DE (occurrence: DE)
  Receive Date: 20241106
  Receipt Date: 20241106
  Transmission Date: 20250114
  Serious: Yes (Hospitalization, Other)
  Sender: ACCORD
  Company Number: DE-EMA-20150616-ssharmap-110633849

PATIENT
  Age: 63 Year
  Sex: Female
  Weight: 72 kg

DRUGS (7)
  1. ANASTROZOLE [Interacting]
     Active Substance: ANASTROZOLE
     Indication: Breast cancer recurrent
     Dosage: 1 MG, IN THE MORNING
     Dates: start: 2006, end: 20110404
  2. OXYBUTYNIN [Interacting]
     Active Substance: OXYBUTYNIN
     Indication: Product used for unknown indication
     Dosage: DAILY DOSE: 5 MG MILLIGRAM(S) EVERY DAY
     Dates: start: 201109
  3. GREEN TEA LEAF [Interacting]
     Active Substance: GREEN TEA LEAF
     Indication: Prophylaxis
     Dosage: 725 MG, DAILY AFTER LUNCH
     Dates: start: 20101221, end: 20110404
  4. RAMIPRIL [Suspect]
     Active Substance: RAMIPRIL
     Indication: Product used for unknown indication
     Dosage: DAILY DOSE: 2.5 MG MILLIGRAM(S) EVERY DAY
     Dates: start: 201109
  5. OXYBUTYNIN [Interacting]
     Active Substance: OXYBUTYNIN
     Indication: Routine health maintenance
     Dosage: DAILY DOSE: 5 MG MILLIGRAM(S) EVERY DAY
     Dates: start: 2009, end: 20110204
  6. RAMIPRIL [Interacting]
     Active Substance: RAMIPRIL
     Indication: Product used for unknown indication
     Dosage: 2.5 MG, IN THE MORNING
     Dates: start: 2008, end: 20110404
  7. OXYBUTYNIN [Interacting]
     Active Substance: OXYBUTYNIN
     Indication: Product used for unknown indication
     Dosage: 5 MG, IN THE MORNING
     Dates: end: 20110404

REACTIONS (11)
  - Pruritus [Recovered/Resolved]
  - Hepatitis [Recovered/Resolved]
  - Portal tract inflammation [Recovered/Resolved]
  - Hepatocellular injury [Recovered/Resolved]
  - Transaminases increased [Recovered/Resolved]
  - Cholestasis [Recovered/Resolved]
  - Drug interaction [Recovered/Resolved]
  - Chromaturia [Recovered/Resolved]
  - Ocular icterus [Recovered/Resolved]
  - Fatigue [Recovered/Resolved]
  - Faeces discoloured [Recovered/Resolved]

NARRATIVE: CASE EVENT DATE: 20110203
